FAERS Safety Report 8322574-0 (Version None)
Quarter: 2012Q2

REPORT INFORMATION
  Report Type: 
  Country: None (occurrence: None)
  Receive Date: 20120430
  Receipt Date: 20120420
  Transmission Date: 20120825
  Serious: Yes (Other)
  Sender: FDA-Public Use
  Company Number: GB-JNJFOC-20111108892

PATIENT
  Sex: Female

DRUGS (3)
  1. PENTASA [Concomitant]
     Route: 065
  2. REMICADE [Suspect]
     Indication: CROHN'S DISEASE
     Route: 042
  3. AZATHIOPRINE [Concomitant]
     Route: 065

REACTIONS (2)
  - PREMATURE DELIVERY [None]
  - MATERNAL EXPOSURE DURING PREGNANCY [None]
